FAERS Safety Report 6112499-3 (Version None)
Quarter: 2009Q1

REPORT INFORMATION
  Report Type: 
  Country: None (occurrence: None)
  Receive Date: 20090312
  Receipt Date: 20090227
  Transmission Date: 20090719
  Serious: Yes (Other)
  Sender: FDA-Public Use
  Company Number: PHHY2008DE21239

PATIENT
  Age: 62 Year
  Sex: Female

DRUGS (2)
  1. DIOVAN HCT [Suspect]
     Dosage: 160/12.5 MG
     Route: 048
  2. DIOVAN [Suspect]
     Dosage: 80 MG, UNK

REACTIONS (4)
  - BLOOD SODIUM DECREASED [None]
  - DEPERSONALISATION [None]
  - DYSPNOEA [None]
  - OEDEMA PERIPHERAL [None]
